FAERS Safety Report 26025083 (Version 1)
Quarter: 2025Q4

REPORT INFORMATION
  Report Type: Spontaneous
  Country: US (occurrence: US)
  Receive Date: 20251111
  Receipt Date: 20251111
  Transmission Date: 20260119
  Serious: No
  Sender: ABBVIE
  Company Number: US-ABBVIE-6540660

PATIENT
  Age: 61 Year
  Weight: 104.32 kg

DRUGS (1)
  1. DIVALPROEX SODIUM [Suspect]
     Active Substance: DIVALPROEX SODIUM
     Indication: Lennox-Gastaut syndrome
     Dosage: 250MG AT AM, 125MG AT MIDDAY, AND 500MG BEDTIME
     Route: 048
     Dates: start: 201602

REACTIONS (3)
  - Multiple allergies [Unknown]
  - Suspected product quality issue [Unknown]
  - Therapeutic product effect decreased [Unknown]

NARRATIVE: CASE EVENT DATE: 20251001
